FAERS Safety Report 5588542-7 (Version None)
Quarter: 2008Q1

REPORT INFORMATION
  Report Type: 
  Country: None (occurrence: None)
  Receive Date: 20080111
  Receipt Date: 20080104
  Transmission Date: 20080703
  Serious: Yes (Death)
  Sender: FDA-Public Use
  Company Number: US-KINGPHARMUSA00001-K200800014

PATIENT

DRUGS (1)
  1. SYNERCID [Suspect]
     Dosage: 1600 MG, UNK
     Route: 042
     Dates: start: 20080102, end: 20080102

REACTIONS (1)
  - DEATH [None]
